FAERS Safety Report 4748334-5 (Version None)
Quarter: 2005Q3

REPORT INFORMATION
  Report Type: 
  Country: None (occurrence: None)
  Receive Date: 20050815
  Receipt Date: 20050502
  Transmission Date: 20060218
  Serious: No
  Sender: FDA-Public Use
  Company Number: USA050189485

PATIENT
  Age: 66 Year
  Sex: Male

DRUGS (3)
  1. CIALIS [Suspect]
     Dosage: 20 MG
     Dates: start: 20040301, end: 20041201
  2. ATENOLOL [Concomitant]
  3. SYNTHROID [Concomitant]

REACTIONS (1)
  - VARICOSE VEIN [None]
